FAERS Safety Report 16092448 (Version 1)
Quarter: 2019Q1

REPORT INFORMATION
  Report Type: Spontaneous
  Country: US (occurrence: US)
  Receive Date: 20190319
  Receipt Date: 20190319
  Transmission Date: 20190418
  Serious: No
  Sender: FDA-Public Use
  Company Number: US-VIFOR (INTERNATIONAL) INC.-VIT-2016-06358

PATIENT
  Age: 48 Year
  Sex: Male

DRUGS (14)
  1. VELTASSA [Suspect]
     Active Substance: PATIROMER
     Indication: HYPERKALAEMIA
     Route: 048
  2. VELTASSA [Suspect]
     Active Substance: PATIROMER
     Route: 048
     Dates: start: 20160923
  3. CHLORTHALIDONE. [Concomitant]
     Active Substance: CHLORTHALIDONE
  4. AMLODIPINE BESYLATE. [Concomitant]
     Active Substance: AMLODIPINE BESYLATE
  5. LEVEMIR [Concomitant]
     Active Substance: INSULIN DETEMIR
  6. ASPIRIN. [Concomitant]
     Active Substance: ASPIRIN
  7. VIAGRA [Concomitant]
     Active Substance: SILDENAFIL CITRATE
  8. ATORVASTATIN CALCIUM. [Concomitant]
     Active Substance: ATORVASTATIN CALCIUM
  9. COLACE [Concomitant]
     Active Substance: DOCUSATE SODIUM
  10. EDARBI [Concomitant]
     Active Substance: AZILSARTAN KAMEDOXOMIL
  11. HUMALOG [Concomitant]
     Active Substance: INSULIN LISPRO
  12. COREG [Concomitant]
     Active Substance: CARVEDILOL
  13. CYCLOBENZAPRINE HCL [Concomitant]
     Active Substance: CYCLOBENZAPRINE HYDROCHLORIDE
  14. GABAPENTIN. [Concomitant]
     Active Substance: GABAPENTIN

REACTIONS (4)
  - Rash pruritic [Not Recovered/Not Resolved]
  - Inappropriate schedule of product administration [Unknown]
  - Rash papular [Not Recovered/Not Resolved]
  - Constipation [Recovered/Resolved]

NARRATIVE: CASE EVENT DATE: 201609
